FAERS Safety Report 9129587 (Version 2)
Quarter: 2013Q1

REPORT INFORMATION
  Report Type: Spontaneous
  Country: US (occurrence: US)
  Receive Date: 20130125
  Receipt Date: 20130308
  Transmission Date: 20140127
  Serious: Yes (Other)
  Sender: FDA-Public Use
  Company Number: US-ABBOTT-13P-163-1037789-00

PATIENT
  Age: 84 Year
  Sex: Male
  Weight: 64.92 kg

DRUGS (3)
  1. LUPRON DEPOT [Suspect]
     Indication: PROSTATE CANCER
     Dates: start: 1999, end: 2000
  2. LUPRON DEPOT [Suspect]
     Dates: start: 201205, end: 201209
  3. CASODEX [Concomitant]
     Indication: PRODUCT USED FOR UNKNOWN INDICATION
     Dates: start: 201205, end: 201205

REACTIONS (4)
  - Prostate cancer metastatic [Unknown]
  - Inappropriate schedule of drug administration [Unknown]
  - Prostatic specific antigen increased [Unknown]
  - Feeling hot [Unknown]
